FAERS Safety Report 6829200-8 (Version None)
Quarter: 2010Q3

REPORT INFORMATION
  Report Type: 
  Country: None (occurrence: None)
  Receive Date: 20100709
  Receipt Date: 20070305
  Transmission Date: 20110219
  Serious: No
  Sender: FDA-Public Use
  Company Number: US-PFIZER INC-2007017564

PATIENT
  Sex: Female
  Weight: 68.04 kg

DRUGS (4)
  1. CHANTIX [Suspect]
     Indication: SMOKING CESSATION THERAPY
     Route: 048
     Dates: start: 20070227, end: 20070303
  2. PROPRANOLOL [Concomitant]
     Indication: MITRAL VALVE PROLAPSE
  3. PREMPRO [Concomitant]
  4. ZYBAN [Concomitant]

REACTIONS (1)
  - INSOMNIA [None]
